FAERS Safety Report 7550538-3 (Version None)
Quarter: 2011Q2

REPORT INFORMATION
  Report Type: 
  Country: None (occurrence: None)
  Receive Date: 20110615
  Receipt Date: 20110603
  Transmission Date: 20111010
  Serious: Yes (Hospitalization)
  Sender: FDA-Public Use
  Company Number: US-CELGENEUS-163-21880-11042763

PATIENT
  Sex: Female
  Weight: 71.278 kg

DRUGS (22)
  1. REVLIMID [Suspect]
     Indication: MULTIPLE MYELOMA
     Dosage: 10 MILLIGRAM
     Route: 048
     Dates: start: 20110126, end: 20110101
  2. PRILOSEC [Concomitant]
     Dosage: 40 MILLIGRAM
     Route: 065
  3. BACTRIM DS [Concomitant]
     Route: 065
  4. DIGOXIN [Concomitant]
     Dosage: .125 MILLIGRAM
     Route: 065
  5. AMIODARONE HCL [Suspect]
     Indication: ATRIAL FIBRILLATION
     Dosage: 100 MILLIGRAM
     Route: 065
  6. MULTI-VITAMINS [Concomitant]
     Dosage: 1
     Route: 065
  7. AUGMENTIN '125' [Concomitant]
     Route: 065
  8. LEVAQUIN [Concomitant]
     Route: 065
  9. GABAPENTIN [Concomitant]
     Dosage: 100 MILLIGRAM
     Route: 065
  10. AMIODARONE HCL [Suspect]
     Dosage: 200 MILLIGRAM
     Route: 065
  11. FLECAINIDE ACETATE [Concomitant]
     Route: 065
  12. MAGNESIUM SULFATE [Concomitant]
     Dosage: 250 MILLIGRAM
     Route: 065
  13. PROPINE [Concomitant]
     Route: 065
  14. VITAMIN D [Concomitant]
     Dosage: 1000 MILLIGRAM
     Route: 065
  15. ASPIRIN [Concomitant]
     Dosage: 81 MILLIGRAM
     Route: 065
  16. ACYCLOVIR [Concomitant]
     Dosage: 800
     Route: 065
  17. CALCIUM CARBONATE [Concomitant]
     Dosage: 600 MILLIGRAM
     Route: 065
  18. POTASSIUM CHLORIDE [Concomitant]
     Dosage: 20 MILLIEQUIVALENTS
     Route: 065
  19. AMBIEN [Concomitant]
     Dosage: 10 MILLIGRAM
     Route: 065
  20. GABAPENTIN [Concomitant]
     Dosage: 300 MILLIGRAM
     Route: 048
  21. ZOMETA [Concomitant]
     Route: 065
  22. QVAR 40 [Concomitant]
     Route: 055

REACTIONS (2)
  - ALVEOLITIS ALLERGIC [None]
  - RASH [None]
